FAERS Safety Report 11847703 (Version 1)
Quarter: 2015Q4

REPORT INFORMATION
  Report Type: Spontaneous
  Country: JP (occurrence: JP)
  Receive Date: 20151217
  Receipt Date: 20151217
  Transmission Date: 20160305
  Serious: Yes (Death)
  Sender: FDA-Public Use
  Company Number: PHJP1900JP001405

PATIENT
  Age: 42 Year
  Sex: Female

DRUGS (12)
  1. VOLTAREN [Suspect]
     Active Substance: DICLOFENAC SODIUM
     Indication: ASTHMA
     Dosage: 50 MG, UNK
     Route: 048
     Dates: start: 19830602, end: 19830602
  2. SAXIZON [Concomitant]
     Active Substance: HYDROCORTISONE SODIUM SUCCINATE
     Indication: PRODUCT USED FOR UNKNOWN INDICATION
     Dosage: UNK
     Route: 065
     Dates: start: 19830602
  3. KAYTWO [Concomitant]
     Active Substance: MENATETRENONE
     Indication: PRODUCT USED FOR UNKNOWN INDICATION
     Dosage: 30 MG, UNK
     Route: 065
     Dates: start: 19830602, end: 19830602
  4. FLAVITAN [Concomitant]
     Active Substance: FLAVIN ADENINE DINUCLEOTIDE
     Indication: PRODUCT USED FOR UNKNOWN INDICATION
     Dosage: 10 MG, UNK
     Dates: start: 19830602, end: 19830602
  5. VITAMIN C [Concomitant]
     Active Substance: ASCORBIC ACID
     Indication: PRODUCT USED FOR UNKNOWN INDICATION
     Dosage: 500 MG, UNK
     Route: 065
     Dates: start: 19830602, end: 19830602
  6. NEOPHYLLIN [Concomitant]
     Indication: PRODUCT USED FOR UNKNOWN INDICATION
     Dosage: 250 MG, UNK
     Route: 065
     Dates: start: 19830602
  7. TRANSAMIN S [Concomitant]
     Active Substance: TRANEXAMIC ACID
     Indication: PRODUCT USED FOR UNKNOWN INDICATION
     Dosage: 1 G, UNK
     Route: 065
     Dates: start: 19830602, end: 19830602
  8. ADONA (AC-17) [Concomitant]
     Indication: PRODUCT USED FOR UNKNOWN INDICATION
     Dosage: 100 ML, UNK
     Route: 065
     Dates: start: 19830602, end: 19830602
  9. KA EN 3A [Concomitant]
     Indication: PRODUCT USED FOR UNKNOWN INDICATION
     Dosage: 500 ML, UNK
     Dates: start: 19830602, end: 19830602
  10. CEFMETAZON [Concomitant]
     Active Substance: CEFMETAZOLE SODIUM
     Indication: PRODUCT USED FOR UNKNOWN INDICATION
     Route: 030
     Dates: start: 19830602, end: 19830602
  11. REPTILASE-S [Concomitant]
     Indication: PRODUCT USED FOR UNKNOWN INDICATION
     Route: 030
     Dates: start: 19830602, end: 19830602
  12. BOSMIN [Concomitant]
     Active Substance: EPINEPHRINE
     Indication: CARDIAC ARREST
     Dosage: UNK
     Route: 022
     Dates: start: 19830602

REACTIONS (15)
  - Rales [Unknown]
  - Diabetes insipidus [Unknown]
  - Asthma [Unknown]
  - Brain death [Unknown]
  - Disseminated intravascular coagulation [Unknown]
  - Cyanosis [Unknown]
  - Cardiac arrest [Recovered/Resolved]
  - Asphyxia [Unknown]
  - Anaphylactic shock [Fatal]
  - Muscle twitching [Unknown]
  - Musculoskeletal stiffness [Unknown]
  - Procedural pain [Unknown]
  - Coma [Unknown]
  - PO2 decreased [Unknown]
  - Dyspnoea [Unknown]
